FAERS Safety Report 10380308 (Version 1)
Quarter: 2014Q1

REPORT INFORMATION
  Report Type: Spontaneous
  Country: US (occurrence: None)
  Receive Date: 20140306
  Receipt Date: 20140306
  Transmission Date: 20141002
  Serious: Yes (Other)
  Sender: FDA-Public Use
  Company Number: 163-21880-13102942

PATIENT
  Age: 65 Year
  Sex: Female

DRUGS (8)
  1. REVLIMID [Suspect]
     Indication: PLASMA CELL MYELOMA
     Dosage: 25 MG, 14 IN 28 D, PO
     Route: 048
     Dates: start: 20130913, end: 20131011
  2. CARVEDILOL [Concomitant]
  3. DIGOXIN [Concomitant]
  4. LISINOPRIL [Concomitant]
  5. FUROSEMIDE [Concomitant]
  6. POTASSIUM CHLORIDE ER [Concomitant]
  7. IBUPROFEN [Concomitant]
  8. ZOLPIDEM [Concomitant]

REACTIONS (3)
  - Quality of life decreased [None]
  - Fatigue [None]
  - Decreased appetite [None]
